FAERS Safety Report 8582739-X (Version None)
Quarter: 2012Q3

REPORT INFORMATION
  Report Type: 
  Country: None (occurrence: None)
  Receive Date: 20120809
  Receipt Date: 20120730
  Transmission Date: 20120928
  Serious: Yes (Hospitalization)
  Sender: FDA-Public Use
  Company Number: FR-BRISTOL-MYERS SQUIBB COMPANY-16828931

PATIENT
  Age: 68 Year
  Sex: Female

DRUGS (2)
  1. ESIDRIX [Suspect]
     Indication: HYPERTENSION
     Dosage: TABLET
     Route: 048
     Dates: end: 20111124
  2. IRBESARTAN [Suspect]
     Indication: HYPERTENSION
     Route: 048
     Dates: end: 20111124

REACTIONS (5)
  - LUNG INFECTION [None]
  - HYPONATRAEMIA [None]
  - CHRONIC OBSTRUCTIVE PULMONARY DISEASE [None]
  - RENAL FAILURE ACUTE [None]
  - ALCOHOLIC PANCREATITIS [None]
